FAERS Safety Report 7406360-1 (Version None)
Quarter: 2011Q2

REPORT INFORMATION
  Report Type: 
  Country: None (occurrence: None)
  Receive Date: 20110411
  Receipt Date: 20110404
  Transmission Date: 20111010
  Serious: Yes (Death)
  Sender: FDA-Public Use
  Company Number: US-PFIZER INC-2011075344

PATIENT
  Age: 50 Year
  Sex: Female

DRUGS (4)
  1. DIPHENHYDRAMINE [Suspect]
  2. SERTRALINE HYDROCHLORIDE [Suspect]
  3. DOXYLAMINE [Suspect]
  4. ALCOHOL [Suspect]

REACTIONS (4)
  - HYPERTHERMIA [None]
  - ALCOHOL POISONING [None]
  - STRESS [None]
  - TOXICITY TO VARIOUS AGENTS [None]
